FAERS Safety Report 7288276-7 (Version None)
Quarter: 2011Q1

REPORT INFORMATION
  Report Type: 
  Country: None (occurrence: None)
  Receive Date: 20110211
  Receipt Date: 20110201
  Transmission Date: 20110831
  Serious: Yes (Hospitalization, Other)
  Sender: FDA-Public Use
  Company Number: JP-ROCHE-753838

PATIENT
  Sex: Male
  Weight: 74 kg

DRUGS (10)
  1. TS-1 [Suspect]
     Indication: LUNG ADENOCARCINOMA METASTATIC
     Route: 048
     Dates: start: 20101209, end: 20101223
  2. GASTER D [Concomitant]
     Route: 048
     Dates: start: 20110110
  3. PREDONINE [Suspect]
     Route: 065
     Dates: start: 20101203, end: 20110110
  4. PURSENNID [Suspect]
     Indication: CONSTIPATION
     Route: 048
     Dates: end: 20110110
  5. OXYCONTIN [Concomitant]
     Dosage: FORM : SUSTAINED RELEASE TABLET.
     Route: 048
     Dates: start: 20101122, end: 20110110
  6. AVASTIN [Suspect]
     Indication: LUNG ADENOCARCINOMA METASTATIC
     Route: 041
     Dates: start: 20100212, end: 20101112
  7. SELBEX [Concomitant]
     Dosage: FORM : PERORAL AGENT
     Route: 048
     Dates: start: 20101125, end: 20110110
  8. LASIX [Concomitant]
     Dates: start: 20110110
  9. ALIMTA [Concomitant]
     Dosage: DOSAGE IS UNCERTAIN.
     Route: 041
     Dates: start: 20101125
  10. NAIXAN [Concomitant]
     Route: 048
     Dates: start: 20101125, end: 20110110

REACTIONS (4)
  - COLITIS [None]
  - DIVERTICULITIS [None]
  - DISSEMINATED INTRAVASCULAR COAGULATION [None]
  - LARGE INTESTINE PERFORATION [None]
